FAERS Safety Report 20030544 (Version 1)
Quarter: 2021Q4

REPORT INFORMATION
  Report Type: Spontaneous
  Country: US (occurrence: US)
  Receive Date: 20211103
  Receipt Date: 20211103
  Transmission Date: 20220303
  Serious: Yes (Other)
  Sender: FDA-Public Use
  Company Number: US-ELI_LILLY_AND_COMPANY-US202110012495

PATIENT
  Age: 44 Year
  Sex: Female

DRUGS (5)
  1. REYVOW [Suspect]
     Active Substance: LASMIDITAN
     Indication: Product used for unknown indication
     Dosage: 50 MG, UNKNOWN
     Route: 065
  2. TOPIRAMATE [Concomitant]
     Active Substance: TOPIRAMATE
     Indication: Product used for unknown indication
  3. OMEPRAZOLE [Concomitant]
     Active Substance: OMEPRAZOLE
     Indication: Product used for unknown indication
  4. WELLBUTRIN [Concomitant]
     Active Substance: BUPROPION HYDROCHLORIDE
     Indication: Anxiety
  5. WELLBUTRIN [Concomitant]
     Active Substance: BUPROPION HYDROCHLORIDE
     Indication: Depression

REACTIONS (4)
  - Suicide attempt [Unknown]
  - Depressed mood [Not Recovered/Not Resolved]
  - Dreamy state [Unknown]
  - Anxiety [Unknown]
